FAERS Safety Report 13182881 (Version 1)
Quarter: 2017Q1

REPORT INFORMATION
  Report Type: Spontaneous
  Country: GR (occurrence: GR)
  Receive Date: 20170203
  Receipt Date: 20170203
  Transmission Date: 20170428
  Serious: Yes (Other)
  Sender: FDA-Public Use
  Company Number: GR-PFIZER INC-2017039315

PATIENT
  Age: 75 Year
  Sex: Male

DRUGS (1)
  1. LIPITOR [Suspect]
     Active Substance: ATORVASTATIN CALCIUM
     Dosage: 10 MG, 2-3 TABLETS PER WEEK AT MOST
     Route: 048

REACTIONS (3)
  - Pancreatitis [Unknown]
  - Platelet count decreased [Unknown]
  - Intentional product misuse [Unknown]
